FAERS Safety Report 11743732 (Version 7)
Quarter: 2018Q1

REPORT INFORMATION
  Report Type: Spontaneous
  Country: US (occurrence: US)
  Receive Date: 20151116
  Receipt Date: 20180130
  Transmission Date: 20180508
  Serious: Yes (Other)
  Sender: FDA-Public Use
  Company Number: PHEH2015US023592

PATIENT
  Sex: Female

DRUGS (2)
  1. ZOFRAN ODT [Suspect]
     Active Substance: ONDANSETRON HYDROCHLORIDE
     Indication: VOMITING IN PREGNANCY
     Dosage: 8 MG, QD
     Route: 048
     Dates: start: 20060919
  2. ONDANSETRON HYDROCHLORIDE. [Suspect]
     Active Substance: ONDANSETRON HYDROCHLORIDE
     Indication: VOMITING IN PREGNANCY
     Dosage: 4 MG, TID
     Route: 065
     Dates: start: 20061229

REACTIONS (31)
  - Cholecystitis chronic [Unknown]
  - Menorrhagia [Unknown]
  - Vulvovaginal mycotic infection [Unknown]
  - Cholesterosis [Unknown]
  - Abdominal pain [Unknown]
  - Dysmenorrhoea [Unknown]
  - Fungal infection [Unknown]
  - Adenomyosis [Unknown]
  - Polycystic ovaries [Unknown]
  - Dysfunctional uterine bleeding [Unknown]
  - Cholelithiasis [Unknown]
  - Anxiety [Unknown]
  - Sinus arrhythmia [Unknown]
  - Maternal exposure during pregnancy [Unknown]
  - Emotional distress [Unknown]
  - Oropharyngeal pain [Unknown]
  - Depression [Unknown]
  - Endometriosis [Unknown]
  - Diarrhoea [Unknown]
  - Hydronephrosis [Unknown]
  - Pharyngitis streptococcal [Unknown]
  - Pelvic pain [Unknown]
  - Dyspepsia [Unknown]
  - Hyperlipidaemia [Unknown]
  - Breast mass [Unknown]
  - Headache [Unknown]
  - Endometritis [Unknown]
  - Pain [Unknown]
  - Pain in extremity [Unknown]
  - Fatigue [Unknown]
  - Product use in unapproved indication [Unknown]
